FAERS Safety Report 8252598-3 (Version None)
Quarter: 2012Q2

REPORT INFORMATION
  Report Type: 
  Country: None (occurrence: None)
  Receive Date: 20120402
  Receipt Date: 20111118
  Transmission Date: 20120825
  Serious: No
  Sender: FDA-Public Use
  Company Number: US-ABBOTT-11P-163-0875380-00

PATIENT
  Sex: Male
  Weight: 97.61 kg

DRUGS (8)
  1. INSULIN [Concomitant]
     Indication: DIABETES MELLITUS
  2. LEVOTHYROXINE SODIUM [Concomitant]
     Indication: HYPOTHYROIDISM
  3. PRAVASTATIN [Concomitant]
     Indication: HYPERLIPIDAEMIA
  4. ZOLOFT [Concomitant]
     Indication: DEPRESSION
  5. METFORMIN HCL [Concomitant]
     Indication: DIABETES MELLITUS
  6. OXYCODONE HCL [Concomitant]
     Indication: PAIN
  7. METHADONE HCL [Concomitant]
     Indication: PAIN
  8. ANDROGEL [Suspect]
     Indication: BLOOD TESTOSTERONE DECREASED
     Dosage: 4 PUMPS DAILY
     Dates: start: 20090101

REACTIONS (1)
  - URINE ALCOHOL TEST POSITIVE [None]
